FAERS Safety Report 9304536 (Version 2)
Quarter: 2013Q2

REPORT INFORMATION
  Report Type: Spontaneous
  Country: CA (occurrence: CA)
  Receive Date: 20130523
  Receipt Date: 20130531
  Transmission Date: 20140414
  Serious: Yes (Hospitalization, Other)
  Sender: FDA-Public Use
  Company Number: CA-AMGEN-CANSP2013035564

PATIENT
  Age: 70 Year
  Sex: Female

DRUGS (4)
  1. ENBREL [Suspect]
     Indication: RHEUMATOID ARTHRITIS
     Dosage: 25 MG, 2 TIMES/WK
     Route: 058
     Dates: start: 20040114
  2. METOPROLOL TEVA [Concomitant]
     Dosage: 1 TABLET PER DAY
  3. LANSOPRAZOLE TEVA [Concomitant]
     Dosage: UNK 1 TABLET PER DAY
  4. TRAZODONE [Concomitant]
     Dosage: UNK 0.5 TABLET PER NIGHT

REACTIONS (11)
  - Ovarian cancer stage IV [Not Recovered/Not Resolved]
  - Activities of daily living impaired [Unknown]
  - Fatigue [Unknown]
  - Abdominal distension [Unknown]
  - Condition aggravated [Unknown]
  - Joint swelling [Unknown]
  - Arthralgia [Unknown]
  - Bone swelling [Unknown]
  - Bone pain [Unknown]
  - Pain [Unknown]
  - Pulmonary oedema [Unknown]
